FAERS Safety Report 24158025 (Version 1)
Quarter: 2024Q3

REPORT INFORMATION
  Report Type: Spontaneous
  Country: GB (occurrence: GB)
  Receive Date: 20240731
  Receipt Date: 20240731
  Transmission Date: 20241017
  Serious: Yes (Disabling, Other)
  Sender: SANDOZ
  Company Number: None

PATIENT
  Age: 59 Year
  Sex: Female
  Weight: 54 kg

DRUGS (6)
  1. PENICILLIN G [Suspect]
     Active Substance: PENICILLIN G
     Indication: Ill-defined disorder
     Dosage: UNK
     Route: 065
     Dates: start: 19750708
  2. AMITRIPTYLINE HYDROCHLORIDE [Concomitant]
     Active Substance: AMITRIPTYLINE HYDROCHLORIDE
     Indication: Ill-defined disorder
     Dosage: TAKE SIX TABLETS AT NIGHT- TOTAL 150MG
     Route: 065
     Dates: start: 20240223
  3. LAMOTRIGINE [Concomitant]
     Active Substance: LAMOTRIGINE
     Indication: Migraine
     Dosage: BD, FOR MIGRAINE
     Route: 065
     Dates: start: 20240223
  4. ACETAMINOPHEN [Concomitant]
     Active Substance: ACETAMINOPHEN
     Indication: Ill-defined disorder
     Dosage: TAKE ONE OR TWO TABLETS EVERY 4-6 HOURS FOR PAIN
     Route: 065
     Dates: start: 20240223
  5. SENNA [Concomitant]
     Active Substance: SENNA LEAF\SENNOSIDES\SENNOSIDES A AND B
     Indication: Ill-defined disorder
     Dosage: (SENNOSIDES) TAKE ONE OR TWO TABLETS ONCE A DAY.
     Route: 065
     Dates: start: 20240223
  6. Valupak vitamin d3 [Concomitant]
     Indication: Ill-defined disorder
     Dosage: UNK UNK, QD
     Route: 065
     Dates: start: 20240223

REACTIONS (4)
  - Dysphagia [Recovered/Resolved]
  - Dyspnoea [Recovered/Resolved]
  - Rash erythematous [Recovered/Resolved]
  - Vomiting [Recovered/Resolved]

NARRATIVE: CASE EVENT DATE: 19750708
